FAERS Safety Report 4873352-6 (Version None)
Quarter: 2006Q1

REPORT INFORMATION
  Report Type: 
  Country: None (occurrence: None)
  Receive Date: 20060105
  Receipt Date: 20050629
  Transmission Date: 20060701
  Serious: Yes (Hospitalization, Disabling)
  Sender: FDA-Public Use
  Company Number: US-ROCHE-409415

PATIENT
  Age: 23 Year
  Sex: Male
  Weight: 73.5 kg

DRUGS (1)
  1. ACCUTANE [Suspect]
     Route: 048
     Dates: start: 19890223, end: 19890615

REACTIONS (42)
  - ABDOMINAL ABSCESS [None]
  - ABDOMINAL PAIN [None]
  - ANAEMIA [None]
  - ANAEMIA VITAMIN B12 DEFICIENCY [None]
  - ANASTOMOTIC LEAK [None]
  - ANHEDONIA [None]
  - ANXIETY [None]
  - ARTHRALGIA [None]
  - ARTHRITIS [None]
  - BACK PAIN [None]
  - BLOOD DISORDER [None]
  - BLOOD POTASSIUM DECREASED [None]
  - CHOLELITHIASIS [None]
  - COLITIS [None]
  - CROHN'S DISEASE [None]
  - DEPRESSION [None]
  - DUODENITIS [None]
  - DYSPEPSIA [None]
  - DYSPHAGIA [None]
  - EOSINOPHIL COUNT INCREASED [None]
  - GASTROINTESTINAL ANASTOMOTIC LEAK [None]
  - GASTROINTESTINAL DISORDER [None]
  - HERNIA [None]
  - HYPERSENSITIVITY [None]
  - HYPOAESTHESIA [None]
  - HYPOTHYROIDISM [None]
  - INFLAMMATORY BOWEL DISEASE [None]
  - INJURY [None]
  - INTESTINAL HAEMORRHAGE [None]
  - INTESTINAL OBSTRUCTION [None]
  - IRRITABLE BOWEL SYNDROME [None]
  - MULTI-ORGAN DISORDER [None]
  - NEPHROLITHIASIS [None]
  - OESOPHAGEAL STENOSIS [None]
  - PAIN [None]
  - POLYARTHRITIS [None]
  - RECTAL HAEMORRHAGE [None]
  - SCOLIOSIS [None]
  - SKIN PAPILLOMA [None]
  - SMALL INTESTINAL OBSTRUCTION [None]
  - SPONDYLOARTHROPATHY [None]
  - TREATMENT NONCOMPLIANCE [None]
